FAERS Safety Report 7654583-9 (Version None)
Quarter: 2011Q3

REPORT INFORMATION
  Report Type: 
  Country: None (occurrence: None)
  Receive Date: 20110803
  Receipt Date: 20110725
  Transmission Date: 20111222
  Serious: Yes (Other)
  Sender: FDA-Public Use
  Company Number: US-RB-027869-11

PATIENT
  Age: 29 Year
  Sex: Male

DRUGS (1)
  1. SUBOXONE [Suspect]
     Indication: PRODUCT USED FOR UNKNOWN INDICATION
     Dosage: SUBLINGUAL FILM / UNKNOWN DOSING INFORMATION
     Route: 065

REACTIONS (12)
  - DRUG WITHDRAWAL SYNDROME [None]
  - COUGH [None]
  - BACK PAIN [None]
  - DRUG DEPENDENCE [None]
  - LACERATION [None]
  - ENERGY INCREASED [None]
  - SUICIDAL IDEATION [None]
  - EUPHORIC MOOD [None]
  - DRUG ABUSE [None]
  - UNDERDOSE [None]
  - INTENTIONAL OVERDOSE [None]
  - DYSPNOEA [None]
